FAERS Safety Report 10079991 (Version 2)
Quarter: 2014Q2

REPORT INFORMATION
  Report Type: Spontaneous
  Country: JP (occurrence: JP)
  Receive Date: 20140415
  Receipt Date: 20140430
  Transmission Date: 20141212
  Serious: Yes (Life-Threatening)
  Sender: FDA-Public Use
  Company Number: JP-EISAI INC-E2090-03210-SPO-JP

PATIENT
  Age: 68 Year
  Sex: Female

DRUGS (12)
  1. EXCEGRAN [Suspect]
     Indication: EPILEPSY
     Route: 048
     Dates: start: 201303, end: 20130417
  2. ATELEC [Suspect]
     Indication: HYPERTENSION
     Dosage: 20 MG
     Route: 065
     Dates: end: 20130417
  3. SYMMETREL [Suspect]
     Indication: APATHY
     Dosage: 150 MG
     Route: 065
     Dates: end: 20130417
  4. BLOPRESS [Suspect]
     Indication: HYPERTENSION
     Dosage: 8 MG
     Route: 065
     Dates: end: 20130417
  5. MUCOSOLVAN DS 3% [Suspect]
     Indication: BRONCHITIS
     Dosage: 45 MG
     Route: 065
     Dates: start: 20130409, end: 20130417
  6. MUCODYNE [Suspect]
     Indication: BRONCHITIS
     Dosage: 1500 MG
     Route: 065
     Dates: start: 20130409, end: 20130417
  7. BIOFERMIN [Concomitant]
     Indication: PRODUCT USED FOR UNKNOWN INDICATION
     Dosage: UNKNOWN
     Route: 065
  8. URSO [Concomitant]
     Indication: PRODUCT USED FOR UNKNOWN INDICATION
     Dosage: UNKNOWN
     Route: 065
  9. SOLULACT [Concomitant]
     Indication: PRODUCT USED FOR UNKNOWN INDICATION
     Dosage: UNKNOWN
     Route: 065
  10. HARTMANN-G3 [Concomitant]
     Indication: PRODUCT USED FOR UNKNOWN INDICATION
     Dosage: UNKNOWN
     Route: 065
  11. YUCION-S (SULBACTAM SODIUM_AMPICILLIN SODIUM) [Concomitant]
     Indication: PRODUCT USED FOR UNKNOWN INDICATION
     Dosage: UNKNOWN
     Route: 065
  12. SEISHOKU [Concomitant]
     Indication: PRODUCT USED FOR UNKNOWN INDICATION
     Dosage: UNKNOWN
     Route: 065

REACTIONS (1)
  - Stevens-Johnson syndrome [Recovering/Resolving]
